FAERS Safety Report 6111356-6 (Version None)
Quarter: 2009Q1

REPORT INFORMATION
  Report Type: 
  Country: None (occurrence: None)
  Receive Date: 20090311
  Receipt Date: 20090310
  Transmission Date: 20090719
  Serious: Yes (Other)
  Sender: FDA-Public Use
  Company Number: A0772569A

PATIENT
  Age: 45 Year
  Sex: Female

DRUGS (2)
  1. ZYBAN [Suspect]
     Indication: DRUG USE FOR UNKNOWN INDICATION
     Dosage: 150MG PER DAY
     Route: 048
  2. NONE [Concomitant]

REACTIONS (5)
  - ANXIETY [None]
  - FEELING JITTERY [None]
  - PALPITATIONS [None]
  - PRURITUS [None]
  - TACHYCARDIA [None]
